FAERS Safety Report 25475300 (Version 1)
Quarter: 2025Q2

REPORT INFORMATION
  Report Type: Spontaneous
  Country: HU (occurrence: HU)
  Receive Date: 20250624
  Receipt Date: 20250624
  Transmission Date: 20250716
  Serious: Yes (Life-Threatening, Hospitalization, Other)
  Sender: NOVARTIS
  Company Number: HU-002147023-NVSC2025HU100431

PATIENT
  Sex: Female

DRUGS (1)
  1. KISQALI [Suspect]
     Active Substance: RIBOCICLIB SUCCINATE
     Indication: Breast cancer
     Route: 065

REACTIONS (37)
  - Diarrhoea [Recovering/Resolving]
  - Vomiting [Recovering/Resolving]
  - Abdominal pain upper [Unknown]
  - Jaundice [Unknown]
  - Renal impairment [Recovered/Resolved]
  - Inflammatory marker increased [Recovering/Resolving]
  - Sepsis [Recovering/Resolving]
  - C-reactive protein increased [Recovered/Resolved]
  - Multiple organ dysfunction syndrome [Recovering/Resolving]
  - Acute kidney injury [Recovered/Resolved]
  - Hypokalaemia [Recovered/Resolved]
  - Septic encephalopathy [Unknown]
  - Acute respiratory distress syndrome [Unknown]
  - Interstitial lung disease [Unknown]
  - Thrombocytopenia [Unknown]
  - Nausea [Recovering/Resolving]
  - Decreased appetite [Recovering/Resolving]
  - Asthenia [Recovering/Resolving]
  - Abdominal tenderness [Unknown]
  - Hyponatraemia [Recovered/Resolved]
  - Hypochloraemia [Recovered/Resolved]
  - Blood glucose increased [Recovered/Resolved]
  - Blood bilirubin increased [Recovered/Resolved]
  - Gamma-glutamyltransferase increased [Recovered/Resolved]
  - Blood alkaline phosphatase increased [Recovered/Resolved]
  - Leukocyturia [Recovering/Resolving]
  - Proteinuria [Recovering/Resolving]
  - Bilirubinuria [Recovering/Resolving]
  - Glycosuria [Recovering/Resolving]
  - Hypotension [Recovering/Resolving]
  - Hepatic enzyme increased [Recovering/Resolving]
  - Intestinal barrier dysfunction [Unknown]
  - Confusional state [Recovered/Resolved]
  - Bacterial infection [Unknown]
  - Procalcitonin increased [Unknown]
  - Staphylococcal infection [Unknown]
  - Lung disorder [Unknown]

NARRATIVE: CASE EVENT DATE: 20250501
